FAERS Safety Report 23043252 (Version 1)
Quarter: 2023Q4

REPORT INFORMATION
  Report Type: Report from Study
  Country: CA (occurrence: CA)
  Receive Date: 20231009
  Receipt Date: 20231009
  Transmission Date: 20240109
  Serious: Yes (Hospitalization)
  Sender: FDA-Public Use
  Company Number: CA-JNJFOC-20230842371

PATIENT
  Age: 20 Year
  Sex: Male
  Weight: 36 kg

DRUGS (3)
  1. REMICADE [Suspect]
     Active Substance: INFLIXIMAB
     Indication: Crohn^s disease
     Route: 042
     Dates: start: 20130822
  2. REMICADE [Suspect]
     Active Substance: INFLIXIMAB
     Dosage: RE-INDUCTION AT WEEKS 0, 4 THEN EVERY 4 WEEKS
     Route: 042
     Dates: start: 20230815
  3. REMICADE [Suspect]
     Active Substance: INFLIXIMAB
     Route: 042
     Dates: start: 20231004

REACTIONS (3)
  - Fungaemia [Unknown]
  - Crohn^s disease [Unknown]
  - Off label use [Unknown]
